FAERS Safety Report 5838412-1 (Version None)
Quarter: 2008Q3

REPORT INFORMATION
  Report Type: 
  Country: None (occurrence: None)
  Receive Date: 20080808
  Receipt Date: 20080725
  Transmission Date: 20090109
  Serious: Yes (Hospitalization, Disabling, Other)
  Sender: FDA-Public Use
  Company Number: PHRM2006FR03336

PATIENT
  Sex: Male

DRUGS (21)
  1. ZOMETA [Suspect]
     Indication: METASTASES TO BONE
     Dosage: 4 MG, QMO
     Route: 042
     Dates: start: 20020101, end: 20060301
  2. MORPHINE [Concomitant]
     Indication: PAIN IN JAW
     Dosage: 20 MG (IF NEEDED)
  3. SKENAN [Concomitant]
     Indication: PAIN IN JAW
     Dosage: 60 MG, BID
  4. TRILEPTAL [Concomitant]
     Indication: PAIN IN JAW
     Dosage: 150 MG, BID
  5. DOLIPRANE [Concomitant]
     Dosage: 1 G
  6. DURAGESIC-100 [Concomitant]
     Dosage: 50
  7. KLIPAL [Concomitant]
     Dosage: UNK
  8. CODOLIPRANE [Concomitant]
  9. RIVOTRIL [Concomitant]
  10. PROPOXYPHENE HCL AND ACETAMINOPHEN [Concomitant]
  11. DECAPEPTYL                              /SCH/ [Concomitant]
  12. LYTOS [Concomitant]
  13. SEROPRAM [Concomitant]
  14. TEMESTA [Concomitant]
  15. FORLAX [Concomitant]
  16. BETADINE [Concomitant]
  17. SODIUM BICARBONATE [Concomitant]
  18. ELUDRIL [Concomitant]
  19. FLAGYL [Concomitant]
     Dosage: 500 MG, TID
  20. AUGMENTIN [Concomitant]
     Dosage: 1 G, TID
  21. ULTRA-LEVURE [Concomitant]

REACTIONS (15)
  - ABDOMINAL SEPSIS [None]
  - AGEUSIA [None]
  - BONE FISTULA [None]
  - DEPRESSED MOOD [None]
  - FATIGUE [None]
  - GASTROINTESTINAL TUBE INSERTION [None]
  - GENERAL PHYSICAL HEALTH DETERIORATION [None]
  - MALNUTRITION [None]
  - NEURALGIA [None]
  - ORAL DISORDER [None]
  - OSTEOLYSIS [None]
  - OSTEONECROSIS [None]
  - PAIN IN JAW [None]
  - PRIMARY SEQUESTRUM [None]
  - TOOTH EXTRACTION [None]
